FAERS Safety Report 9058312 (Version 3)
Quarter: 2013Q2

REPORT INFORMATION
  Report Type: Spontaneous
  Country: US (occurrence: US)
  Receive Date: 20120927
  Receipt Date: 20130410
  Transmission Date: 20140414
  Serious: Yes (Other)
  Sender: FDA-Public Use
  Company Number: US-RB-044862-12

PATIENT
  Age: 0 Year
  Sex: Male

DRUGS (9)
  1. SUBOXONE TABLET [Suspect]
     Route: 064
     Dates: start: 201105, end: 201107
  2. SUBOXONE TABLET [Suspect]
     Indication: DRUG DEPENDENCE
     Route: 064
     Dates: start: 201106, end: 20120105
  3. SUBOXONE TABLET [Suspect]
     Route: 063
     Dates: start: 20120106, end: 201202
  4. SEROQUEL [Suspect]
     Indication: INSOMNIA
     Route: 064
     Dates: start: 201105, end: 201107
  5. LEXAPRIL [Suspect]
     Indication: DEPRESSION
     Route: 064
     Dates: start: 201105, end: 201107
  6. NICOTINE [Suspect]
     Dosage: 3 PACKS OF CIGARETTES DAILY
     Route: 064
     Dates: start: 201105, end: 201107
  7. NICOTINE [Suspect]
     Indication: TOBACCO USER
     Dosage: 17 CIGARETTES DAILY
     Route: 064
     Dates: start: 201107, end: 201202
  8. PRENATAL VITAMINS [Suspect]
     Indication: PRODUCT USED FOR UNKNOWN INDICATION
     Dosage: DOSING DETAILS UNKNOWN
     Route: 064
     Dates: start: 201107, end: 20120105
  9. PAIN MEDICATION [Suspect]
     Indication: UPPER LIMB FRACTURE
     Dosage: DOSING DETAILS UNKNOWN
     Route: 065
     Dates: start: 2012, end: 2012

REACTIONS (4)
  - Foetal exposure during pregnancy [Recovered/Resolved]
  - Upper limb fracture [Recovered/Resolved]
  - Exposure during breast feeding [Recovered/Resolved]
  - Drug withdrawal syndrome neonatal [Recovered/Resolved]
